FAERS Safety Report 5883496-8 (Version None)
Quarter: 2008Q3

REPORT INFORMATION
  Report Type: 
  Country: None (occurrence: None)
  Receive Date: 20080915
  Receipt Date: 20080909
  Transmission Date: 20090109
  Serious: Yes (Other)
  Sender: FDA-Public Use
  Company Number: PHHY2008IT21092

PATIENT
  Sex: Male

DRUGS (7)
  1. LIORESAL [Suspect]
     Indication: QUADRIPLEGIA
     Dosage: 25 MG, 3 POSOLGY UNITS
     Route: 048
     Dates: start: 20080617, end: 20080813
  2. AUGMENTIN '125' [Suspect]
     Indication: SKIN INFECTION
     Dosage: 875 MG+125 MG, 3 POSOLOGY UNITS
     Route: 048
     Dates: start: 20080722, end: 20080725
  3. AUGMENTIN '125' [Suspect]
     Dosage: 875 MG+125 MG, 3 POSOLOGY UNITS
     Route: 048
  4. LANSOPRAZOLE [Suspect]
     Indication: PROPHYLAXIS AGAINST GASTROINTESTINAL ULCER
     Dosage: 1 DF/ DAY
     Route: 048
     Dates: start: 20080713, end: 20080724
  5. ASPIRIN [Concomitant]
     Dosage: 100 MG, UNK
     Route: 048
  6. RAMIPRIL [Concomitant]
  7. ACETAMINOPHEN [Concomitant]

REACTIONS (1)
  - HEPATITIS [None]
